FAERS Safety Report 7731884-7 (Version None)
Quarter: 2011Q3

REPORT INFORMATION
  Report Type: 
  Country: None (occurrence: None)
  Receive Date: 20110906
  Receipt Date: 20110711
  Transmission Date: 20111222
  Serious: No
  Sender: FDA-Public Use
  Company Number: US-AMGEN-USASP2011035097

PATIENT
  Age: 84 Year
  Sex: Female

DRUGS (6)
  1. ANTIHYPERTENSIVES [Concomitant]
     Dosage: UNK
  2. PROLIA [Suspect]
     Indication: OSTEOPOROSIS POSTMENOPAUSAL
     Dosage: UNK
     Dates: start: 20110601
  3. CALCIUM CARBONATE [Concomitant]
     Dosage: UNK
  4. VICODIN [Concomitant]
     Dosage: UNK
  5. VITAMIN D [Concomitant]
     Dosage: UNK
  6. THYROID THERAPY [Concomitant]

REACTIONS (4)
  - PAIN [None]
  - LIMB DISCOMFORT [None]
  - PAIN IN EXTREMITY [None]
  - HYPOKINESIA [None]
